FAERS Safety Report 14057742 (Version 1)
Quarter: 2017Q4

REPORT INFORMATION
  Report Type: Spontaneous
  Country: RU (occurrence: RU)
  Receive Date: 20171006
  Receipt Date: 20171006
  Transmission Date: 20180321
  Serious: Yes (Hospitalization, Other)
  Sender: FDA-Public Use
  Company Number: RU-ASTRAZENECA-2017SF00656

PATIENT
  Age: 60 Year
  Sex: Female
  Weight: 68 kg

DRUGS (5)
  1. BRILINTA [Suspect]
     Active Substance: TICAGRELOR
     Indication: STENT PLACEMENT
     Route: 048
     Dates: start: 201702
  2. CONCOR [Concomitant]
     Active Substance: BISOPROLOL FUMARATE
  3. METFORMIN [Concomitant]
     Active Substance: METFORMIN HYDROCHLORIDE
  4. ATORVASTATIN [Concomitant]
     Active Substance: ATORVASTATIN
  5. DIABETON MB [Concomitant]
     Active Substance: GLICLAZIDE

REACTIONS (4)
  - Off label use [Recovering/Resolving]
  - Stress [Unknown]
  - Acute coronary syndrome [Recovering/Resolving]
  - Product use in unapproved indication [Unknown]
